FAERS Safety Report 6239664-9 (Version None)
Quarter: 2009Q2

REPORT INFORMATION
  Report Type: 
  Country: None (occurrence: None)
  Receive Date: 20090619
  Receipt Date: 20090616
  Transmission Date: 20091009
  Serious: Yes (Hospitalization)
  Sender: FDA-Public Use
  Company Number: CIP09001580

PATIENT
  Age: 72 Year
  Sex: Female

DRUGS (6)
  1. ACTONEL [Suspect]
     Dosage: ORAL
     Route: 048
  2. PANTOPRAZOLE SODIUM [Concomitant]
  3. COVERSYL         /00790701/ (PERINDOPRIL) [Concomitant]
  4. CALCIUM (CALCIUM) [Concomitant]
  5. ERGOCALCIFEROL [Concomitant]
  6. IRON + VITAMIN C	/01766801/ (ASCORBIC ACID, IRON) [Concomitant]

REACTIONS (6)
  - ABDOMINAL DISCOMFORT [None]
  - ANGLE CLOSURE GLAUCOMA [None]
  - DIARRHOEA [None]
  - HEADACHE [None]
  - IRITIS [None]
  - MYALGIA [None]
